FAERS Safety Report 4576257-3 (Version None)
Quarter: 2005Q1

REPORT INFORMATION
  Report Type: 
  Country: None (occurrence: None)
  Receive Date: 20050207
  Receipt Date: 20050126
  Transmission Date: 20050727
  Serious: Yes (Death)
  Sender: FDA-Public Use
  Company Number: 2005-DE-00315GD

PATIENT

DRUGS (4)
  1. METRONIDAZOLE [Suspect]
     Dosage: IU, AT CONCEPTION AND EARLY 1ST TRIMESTER
     Route: 015
  2. AZATHIOPRINE [Suspect]
     Dosage: IU, AT CONCEPTION AND EARLY 1ST TRIMESTER
     Route: 015
  3. INFLIXIMAB (INFLIXIMAB) [Suspect]
     Dosage: IU, AT CONCEPTION AND EARLY 1ST TRIMESTER
     Route: 015
  4. MESALAMINE [Suspect]
     Dosage: IU, AT CONCEPTION AND EARLY 1ST TRIMESTER
     Route: 015

REACTIONS (6)
  - CEREBRAL HAEMORRHAGE NEONATAL [None]
  - DEATH NEONATAL [None]
  - DRUG EXPOSURE DURING PREGNANCY [None]
  - NEONATAL DISORDER [None]
  - PREMATURE BABY [None]
  - PULMONARY HAEMORRHAGE [None]
